FAERS Safety Report 5492033-1 (Version None)
Quarter: 2007Q4

REPORT INFORMATION
  Report Type: 
  Country: None (occurrence: None)
  Receive Date: 20071018
  Receipt Date: 20071018
  Transmission Date: 20080405
  Serious: Yes (Other)
  Sender: FDA-Public Use
  Company Number: None

PATIENT
  Age: 62 Year
  Sex: Male
  Weight: 70.7611 kg

DRUGS (1)
  1. DOXYLAMINE 25 MG CVS GENERIC [Suspect]
     Indication: INSOMNIA
     Dosage: 12.5 HS X 1 PO
     Route: 048

REACTIONS (4)
  - ARRHYTHMIA SUPRAVENTRICULAR [None]
  - ATRIAL FIBRILLATION [None]
  - ATRIAL TACHYCARDIA [None]
  - EXTRASYSTOLES [None]
